FAERS Safety Report 6989071-6 (Version None)
Quarter: 2010Q3

REPORT INFORMATION
  Report Type: 
  Country: None (occurrence: None)
  Receive Date: 20100916
  Receipt Date: 20091029
  Transmission Date: 20110219
  Serious: Yes (Other)
  Sender: FDA-Public Use
  Company Number: US-PFIZER INC-2007014444

PATIENT
  Sex: Female
  Weight: 84.807 kg

DRUGS (7)
  1. LYRICA [Suspect]
     Indication: TRIGEMINAL NEURALGIA
     Dosage: 25 MG, 1X/DAY
     Route: 048
     Dates: start: 20061201
  2. ATENOLOL [Concomitant]
  3. CLONIDINE [Concomitant]
  4. PROTONIX [Concomitant]
  5. BENTYL [Concomitant]
  6. XANAX [Concomitant]
  7. ZYRTEC [Concomitant]

REACTIONS (27)
  - ASTHENIA [None]
  - BACK PAIN [None]
  - BALANCE DISORDER [None]
  - BURNING SENSATION [None]
  - DEAFNESS TRANSITORY [None]
  - DIZZINESS [None]
  - DRUG INEFFECTIVE [None]
  - DRY SKIN [None]
  - FALL [None]
  - FOOD CRAVING [None]
  - IMPAIRED WORK ABILITY [None]
  - INJURY [None]
  - MEMORY IMPAIRMENT [None]
  - MUSCLE INJURY [None]
  - MUSCLE SPASMS [None]
  - NERVE COMPRESSION [None]
  - OEDEMA PERIPHERAL [None]
  - PAIN [None]
  - PAIN IN EXTREMITY [None]
  - PARAESTHESIA [None]
  - PARALYSIS [None]
  - SKIN FISSURES [None]
  - SLEEP DISORDER [None]
  - SOMNOLENCE [None]
  - THINKING ABNORMAL [None]
  - VISION BLURRED [None]
  - WEIGHT INCREASED [None]
